FAERS Safety Report 5878155-1 (Version None)
Quarter: 2008Q3

REPORT INFORMATION
  Report Type: 
  Country: None (occurrence: None)
  Receive Date: 20080911
  Receipt Date: 20080903
  Transmission Date: 20090109
  Serious: Yes (Other)
  Sender: FDA-Public Use
  Company Number: BR-ASTRAZENECA-2008UW18303

PATIENT
  Age: 26 Year
  Sex: Male

DRUGS (3)
  1. SEROQUEL [Suspect]
     Dosage: 4 TABLETS
     Route: 048
     Dates: start: 20080902
  2. CHLORPROMAZINE [Suspect]
     Dosage: 30 TABLETS
     Dates: start: 20080902
  3. CLONAZEPAM [Suspect]
     Dosage: 4 TABLETS
     Route: 048
     Dates: start: 20080902

REACTIONS (2)
  - DYSPHONIA [None]
  - SUICIDE ATTEMPT [None]
